FAERS Safety Report 24560533 (Version 1)
Quarter: 2024Q4

REPORT INFORMATION
  Report Type: Spontaneous
  Country: IT (occurrence: IT)
  Receive Date: 20241029
  Receipt Date: 20241029
  Transmission Date: 20250115
  Serious: Yes (Hospitalization)
  Sender: TEVA
  Company Number: None

PATIENT
  Age: 25 Year
  Sex: Female

DRUGS (2)
  1. AMOXICILLIN\CLAVULANIC ACID [Suspect]
     Active Substance: AMOXICILLIN\CLAVULANIC ACID
     Indication: Pharyngotonsillitis
     Dosage: 875 +125 EVERY 8 HOURS, AMOXICILLIN + CLAVULANIC ACID
     Route: 048
     Dates: start: 20240817, end: 20240817
  2. IBUPROFEN [Suspect]
     Active Substance: IBUPROFEN
     Indication: Pharyngotonsillitis
     Dosage: 600 MG EVERY 12 HOURS
     Route: 065
     Dates: start: 20240817, end: 20240818

REACTIONS (4)
  - Skin toxicity [Recovered/Resolved]
  - Pyrexia [Recovered/Resolved]
  - White blood cell count increased [Recovering/Resolving]
  - C-reactive protein abnormal [Recovered/Resolved]

NARRATIVE: CASE EVENT DATE: 20240817
